FAERS Safety Report 24981892 (Version 1)
Quarter: 2025Q1

REPORT INFORMATION
  Report Type: Spontaneous
  Country: US (occurrence: US)
  Receive Date: 20250218
  Receipt Date: 20250218
  Transmission Date: 20250409
  Serious: Yes (Death, Other)
  Sender: INCYTE
  Company Number: US-INCYTE CORPORATION-2025IN001823

PATIENT

DRUGS (2)
  1. PEMAZYRE [Suspect]
     Active Substance: PEMIGATINIB
     Indication: Cutaneous T-cell lymphoma
     Dosage: 13.5 MILLIGRAM, QD
     Route: 065
  2. PEMAZYRE [Suspect]
     Active Substance: PEMIGATINIB
     Dosage: 9 MILLIGRAM, QD
     Route: 065

REACTIONS (7)
  - Death [Fatal]
  - Cutaneous T-cell lymphoma recurrent [Unknown]
  - Drug effective for unapproved indication [Unknown]
  - Hyperphosphataemia [Unknown]
  - Nail disorder [Unknown]
  - Eye irritation [Unknown]
  - Off label use [Unknown]

NARRATIVE: CASE EVENT DATE: 20230101
